FAERS Safety Report 16167203 (Version 1)
Quarter: 2019Q2

REPORT INFORMATION
  Report Type: Spontaneous
  Country: CN (occurrence: CN)
  Receive Date: 20190408
  Receipt Date: 20190408
  Transmission Date: 20190711
  Serious: Yes (Hospitalization, Other)
  Sender: FDA-Public Use
  Company Number: CN-BAXTER-2019BAX006751

PATIENT
  Age: 28 Year
  Sex: Male
  Weight: 80 kg

DRUGS (21)
  1. CYTARABINE HYDROCHLORIDE [Suspect]
     Active Substance: CYTARABINE HYDROCHLORIDE
     Indication: PRODUCT USED FOR UNKNOWN INDICATION
     Route: 065
  2. EPIRUBICIN HYDROCHLORIDE. [Suspect]
     Active Substance: EPIRUBICIN HYDROCHLORIDE
     Indication: NON-HODGKIN^S LYMPHOMA
     Dosage: 11 CHEMOTHERAPY TREATMENTS, EPIRUBICIN+NS
     Route: 041
  3. ENDOXAN [Suspect]
     Active Substance: CYCLOPHOSPHAMIDE
     Dosage: 0.9%NS100ML+CYCLOPHOSPHAMIDE1.2G IVGTT QD
     Route: 041
     Dates: start: 20190308, end: 20190308
  4. 0.9% SODIUM CHLORIDE INJECTION [Suspect]
     Active Substance: SODIUM CHLORIDE
     Indication: MEDICATION DILUTION
     Dosage: 11 CHEMOTHERAPY TREATMENTS, CYCLOPHOSPHAMIDE+NS
     Route: 041
  5. 0.9% SODIUM CHLORIDE INJECTION [Suspect]
     Active Substance: SODIUM CHLORIDE
     Dosage: 0.9%NS100ML+CYCLOPHOSPHAMIDE1.2G IVGTT QD
     Route: 041
     Dates: start: 20190308, end: 20190308
  6. ENDOXAN [Suspect]
     Active Substance: CYCLOPHOSPHAMIDE
     Indication: NON-HODGKIN^S LYMPHOMA
     Route: 065
  7. 0.9% SODIUM CHLORIDE INJECTION [Suspect]
     Active Substance: SODIUM CHLORIDE
     Dosage: 0.9%NS100ML+EPIRUBICIN140MG IVGTT QD
     Route: 041
     Dates: start: 20190308, end: 20190308
  8. 0.9% SODIUM CHLORIDE INJECTION [Suspect]
     Active Substance: SODIUM CHLORIDE
     Dosage: 11 CHEMOTHERAPY TREATMENTS, EPIRUBICIN+NS
     Route: 041
  9. ENDOXAN [Suspect]
     Active Substance: CYCLOPHOSPHAMIDE
     Indication: PRODUCT USED FOR UNKNOWN INDICATION
     Dosage: 11 CHEMOTHERAPY TREATMENTS
     Route: 041
  10. 5% GLUCOSE  INJECTION [Suspect]
     Active Substance: DEXTROSE
     Dosage: 5%GS250ML+CYTARABINE 0.18G INTRATHECAL (IT) INJECTION QD
     Route: 037
     Dates: start: 20190308, end: 20190313
  11. MITOXANTRONE HYDROCHLORIDE. [Suspect]
     Active Substance: MITOXANTRONE HYDROCHLORIDE
     Indication: PRODUCT USED FOR UNKNOWN INDICATION
     Route: 065
  12. EPIRUBICIN HYDROCHLORIDE. [Suspect]
     Active Substance: EPIRUBICIN HYDROCHLORIDE
     Dosage: 0.9%NS100ML+EPIRUBICIN140MG IVGTT QD
     Route: 041
     Dates: start: 20190308, end: 20190308
  13. VINCRISTINE SULFATE. [Suspect]
     Active Substance: VINCRISTINE SULFATE
     Dosage: 0.9%NS50ML+VINCRISTINE 2MG IVGTT QD
     Route: 041
     Dates: start: 20190308, end: 20190308
  14. DEXAMETHASONE SODIUM PHOSPHATE. [Suspect]
     Active Substance: DEXAMETHASONE SODIUM PHOSPHATE
     Route: 040
     Dates: start: 20190308, end: 20190313
  15. 0.9% SODIUM CHLORIDE INJECTION [Suspect]
     Active Substance: SODIUM CHLORIDE
     Dosage: 11 CHEMOTHERAPY TREATMENTS, VINCRISTINE+NS
     Route: 041
  16. 0.9% SODIUM CHLORIDE INJECTION [Suspect]
     Active Substance: SODIUM CHLORIDE
     Dosage: 0.9%NS50ML+VINCRISTINE 2MG IVGTT QD
     Route: 041
     Dates: start: 20190308, end: 20190308
  17. 5% GLUCOSE  INJECTION [Suspect]
     Active Substance: DEXTROSE
     Indication: MEDICATION DILUTION
     Dosage: 11 CHEMOTHERAPY TREATMENTS, CYTARABINE+GS
     Route: 037
  18. CYTARABINE HYDROCHLORIDE [Suspect]
     Active Substance: CYTARABINE HYDROCHLORIDE
     Indication: NON-HODGKIN^S LYMPHOMA
     Dosage: 11 CHEMOTHERAPY TREATMENTS, CYTARABINE+GS
     Route: 037
  19. CYTARABINE HYDROCHLORIDE [Suspect]
     Active Substance: CYTARABINE HYDROCHLORIDE
     Dosage: 5%GS250ML+CYTARABINE 0.18G INTRATHECAL (IT) INJECTION QD
     Route: 037
     Dates: start: 20190308, end: 20190313
  20. VINCRISTINE SULFATE. [Suspect]
     Active Substance: VINCRISTINE SULFATE
     Indication: NON-HODGKIN^S LYMPHOMA
     Dosage: 11 CHEMOTHERAPY TREATMENTS, VINCRISTINE SULFATE+NS
     Route: 041
  21. DEXAMETHASONE SODIUM PHOSPHATE. [Suspect]
     Active Substance: DEXAMETHASONE SODIUM PHOSPHATE
     Indication: NON-HODGKIN^S LYMPHOMA
     Dosage: 11 CHEMOTHERAPY TREATMENTS
     Route: 040

REACTIONS (2)
  - Bone marrow failure [Recovering/Resolving]
  - Bone marrow failure [Recovered/Resolved]

NARRATIVE: CASE EVENT DATE: 20190317
